FAERS Safety Report 10910942 (Version 1)
Quarter: 2015Q1

REPORT INFORMATION
  Report Type: Spontaneous
  Country: BR (occurrence: BR)
  Receive Date: 20150312
  Receipt Date: 20150312
  Transmission Date: 20150721
  Serious: Yes (Other)
  Sender: FDA-Public Use
  Company Number: BR-ABBVIE-15P-020-1359364-00

PATIENT
  Sex: Male
  Weight: 36 kg

DRUGS (9)
  1. URBANIL [Concomitant]
     Active Substance: CLOBAZAM
     Indication: SLEEP DISORDER THERAPY
  2. DEPAKENE [Suspect]
     Active Substance: VALPROIC ACID
     Indication: EPILEPSY
     Route: 048
  3. DEPAKOTE [Suspect]
     Active Substance: DIVALPROEX SODIUM
     Indication: PRODUCT USED FOR UNKNOWN INDICATION
     Dosage: DAILY DOSE:500MG; 250MG IN THE MORNING AND 250MG AT NIGHT
     Route: 048
  4. DEPAKOTE [Suspect]
     Active Substance: DIVALPROEX SODIUM
     Dosage: DAILY DOSE:1000MG; 500MG IN THE MORNING AND 500MG AT NIGHT
     Route: 048
     Dates: start: 201411
  5. LAMOTRIGINE. [Concomitant]
     Active Substance: LAMOTRIGINE
     Indication: CONVULSION PROPHYLAXIS
     Dosage: 100MG; 50MG IN THE MORNING AND 50MG AT NIGHT
     Route: 048
     Dates: start: 201309
  6. QUETIAPINE FUMARATE. [Concomitant]
     Active Substance: QUETIAPINE FUMARATE
     Indication: MOOD ALTERED
     Dosage: 0.5 TABLET AT 10:00 AM
     Route: 048
     Dates: start: 20150302
  7. URBANIL [Concomitant]
     Active Substance: CLOBAZAM
     Indication: MOOD ALTERED
     Dosage: 20MG; 10 MG IN THE MORNING AND 10MG AT NIGHT
     Route: 048
     Dates: start: 201501
  8. DEPAKOTE [Suspect]
     Active Substance: DIVALPROEX SODIUM
     Dosage: DAILY DOSE: 750 MG; 1 TABLET 500 MG IN THE MORNING AND 1 TABLET 250MG AT NIGHT
     Route: 048
  9. CARBAMAZEPINE. [Concomitant]
     Active Substance: CARBAMAZEPINE
     Indication: CONVULSION PROPHYLAXIS
     Dosage: 200MG IN THE MORNING AND 400MG AT NIGHT
     Dates: start: 201209

REACTIONS (11)
  - Aggression [Not Recovered/Not Resolved]
  - Anaemia [Not Recovered/Not Resolved]
  - Off label use [Unknown]
  - Decreased interest [Not Recovered/Not Resolved]
  - Partial seizures [Recovered/Resolved]
  - Feeding disorder of infancy or early childhood [Not Recovered/Not Resolved]
  - Insomnia [Not Recovered/Not Resolved]
  - Memory impairment [Not Recovered/Not Resolved]
  - Partial seizures [Unknown]
  - Enuresis [Not Recovered/Not Resolved]
  - Blood cholesterol increased [Unknown]

NARRATIVE: CASE EVENT DATE: 2013
